FAERS Safety Report 4895609-5 (Version None)
Quarter: 2006Q1

REPORT INFORMATION
  Report Type: 
  Country: None (occurrence: None)
  Receive Date: 20060125
  Receipt Date: 20060109
  Transmission Date: 20060701
  Serious: Yes (Other)
  Sender: FDA-Public Use
  Company Number: IMP_1998_2006

PATIENT
  Sex: Male

DRUGS (1)
  1. CLARITIN-D [Suspect]
     Indication: SEASONAL ALLERGY
     Dosage: 1 TAB BID PO
     Route: 048
     Dates: start: 20051229, end: 20051230

REACTIONS (6)
  - BACK PAIN [None]
  - HEADACHE [None]
  - NAUSEA [None]
  - PAIN IN EXTREMITY [None]
  - PALPITATIONS [None]
  - VOMITING [None]
